FAERS Safety Report 7523465-5 (Version None)
Quarter: 2011Q2

REPORT INFORMATION
  Report Type: 
  Country: None (occurrence: None)
  Receive Date: 20110601
  Receipt Date: 20110601
  Transmission Date: 20111010
  Serious: No
  Sender: FDA-Public Use
  Company Number: None

PATIENT
  Sex: Male
  Weight: 72.12 kg

DRUGS (2)
  1. TAXOL [Suspect]
     Dosage: 336 MG
     Dates: end: 20110509
  2. CARBOPLATIN [Suspect]
     Dosage: 660 MG
     Dates: end: 20110509

REACTIONS (2)
  - NEUTROPENIA [None]
  - LEUKOPENIA [None]
